FAERS Safety Report 14304863 (Version 1)
Quarter: 2017Q4

REPORT INFORMATION
  Report Type: Spontaneous
  Country: JP (occurrence: JP)
  Receive Date: 20171219
  Receipt Date: 20171219
  Transmission Date: 20180321
  Serious: Yes (Other)
  Sender: FDA-Public Use
  Company Number: JP-OTSUKA-004731

PATIENT
  Age: 69 Year
  Sex: Male

DRUGS (6)
  1. MAGLAX [Concomitant]
     Active Substance: MAGNESIUM OXIDE
     Dosage: 330 MG, QD
     Route: 048
  2. CONTOMIN [Suspect]
     Active Substance: CHLORPROMAZINE
     Indication: ASOCIAL BEHAVIOUR
  3. CONTOMIN [Suspect]
     Active Substance: CHLORPROMAZINE
     Indication: PSYCHIATRIC SYMPTOM
     Dosage: 200 MG, QD
     Route: 048
     Dates: start: 20080903, end: 20081006
  4. BARNETIL [Suspect]
     Active Substance: SULTOPRIDE HYDROCHLORIDE
     Dosage: 900 MG, QD
     Route: 048
     Dates: end: 20081006
  5. ABILIFY [Suspect]
     Active Substance: ARIPIPRAZOLE
     Indication: SCHIZOPHRENIA
     Dosage: 12 MG, QD
     Route: 048
     Dates: end: 20081006
  6. AKINETON [Concomitant]
     Active Substance: BIPERIDEN HYDROCHLORIDE
     Dosage: 1 MG, QD
     Route: 048

REACTIONS (1)
  - Ileus [Recovering/Resolving]

NARRATIVE: CASE EVENT DATE: 20081006
